FAERS Safety Report 5019712-4 (Version None)
Quarter: 2006Q2

REPORT INFORMATION
  Report Type: 
  Country: None (occurrence: None)
  Receive Date: 20060607
  Receipt Date: 20060320
  Transmission Date: 20061013
  Serious: Yes (Other)
  Sender: FDA-Public Use
  Company Number: PHEH2006US03666

PATIENT
  Age: 47 Year
  Sex: Female

DRUGS (2)
  1. TRILEPTAL [Suspect]
     Indication: EPILEPSY
     Dosage: 1800 MG, QD
     Route: 048
     Dates: start: 20000418
  2. NEXIUM [Suspect]
     Indication: GASTROOESOPHAGEAL REFLUX DISEASE
     Dosage: 40 MG, ONCE/SINGLE
     Route: 048
     Dates: start: 20051023, end: 20051023

REACTIONS (5)
  - BREAST CANCER STAGE I [None]
  - BREAST MASS [None]
  - CONVULSION [None]
  - MASTECTOMY [None]
  - MIGRAINE [None]
